FAERS Safety Report 9543783 (Version 1)
Quarter: 2013Q3

REPORT INFORMATION
  Report Type: Spontaneous
  Country: FR (occurrence: FR)
  Receive Date: 20130923
  Receipt Date: 20130923
  Transmission Date: 20140515
  Serious: Yes (Other)
  Sender: FDA-Public Use
  Company Number: FR-TEVA-432570ISR

PATIENT
  Age: 51 Year
  Sex: Female

DRUGS (4)
  1. PANTOPRAZOLE [Suspect]
     Route: 065
  2. VANCOMYCIN [Suspect]
     Route: 065
  3. ACICLOVIR [Suspect]
     Route: 065
  4. IMIPENEM, CILASTATIN [Suspect]
     Route: 065

REACTIONS (1)
  - Drug reaction with eosinophilia and systemic symptoms [Recovered/Resolved]
